FAERS Safety Report 9373628 (Version 3)
Quarter: 2013Q3

REPORT INFORMATION
  Report Type: Spontaneous
  Country: JP (occurrence: JP)
  Receive Date: 20130627
  Receipt Date: 20130729
  Transmission Date: 20140515
  Serious: Yes (Death, Disabling, Other)
  Sender: FDA-Public Use
  Company Number: JP-OTSUKA-JP-2013-12185

PATIENT
  Age: 75 Year
  Sex: Female

DRUGS (17)
  1. SAMSCA [Suspect]
     Indication: CARDIAC FAILURE
     Dosage: 3.75 MG MILLIGRAM(S), QD
     Route: 048
     Dates: start: 20130515, end: 20130601
  2. SAMSCA [Suspect]
     Indication: OEDEMA PERIPHERAL
  3. LASIX [Concomitant]
     Indication: CARDIAC FAILURE
     Dosage: 40 MG MILLIGRAM(S), QD
     Route: 048
  4. LASIX [Concomitant]
     Indication: OEDEMA PERIPHERAL
  5. LASIX [Concomitant]
     Indication: ASCITES
  6. LUPRAC [Concomitant]
     Indication: CARDIAC FAILURE
     Dosage: 8 MG MILLIGRAM(S), QD
     Route: 048
  7. LUPRAC [Concomitant]
     Indication: OEDEMA PERIPHERAL
  8. LUPRAC [Concomitant]
     Indication: ASCITES
  9. ALDACTONE A [Concomitant]
     Indication: CARDIAC FAILURE
     Dosage: 50 MG MILLIGRAM(S), QD
     Route: 048
  10. ALDACTONE A [Concomitant]
     Indication: OEDEMA PERIPHERAL
  11. ALDACTONE A [Concomitant]
     Indication: ASCITES
  12. MUCOSOLVAN L [Concomitant]
     Dosage: 45 MG MILLIGRAM(S), QD
     Route: 048
  13. WARFARIN [Concomitant]
     Indication: ANTICOAGULANT THERAPY
     Dosage: 1 MG MILLIGRAM(S), QD
     Route: 048
  14. GLUCOBAY [Concomitant]
     Indication: DIABETES MELLITUS MANAGEMENT
     Dosage: 50 MG MILLIGRAM(S), TID
     Route: 048
  15. ASPARA POTASSIUM [Concomitant]
     Indication: HYPOKALAEMIA
     Dosage: 300 MG MILLIGRAM(S), BID
     Route: 048
  16. LAXOBERON [Concomitant]
     Dosage: 10 GTT DROP(S), PRN
     Route: 048
  17. LIVACT [Concomitant]
     Dosage: 4.15 G GRAM(S), BID
     Route: 048
     Dates: start: 20130514

REACTIONS (7)
  - Hepatic cirrhosis [Fatal]
  - Multi-organ failure [Fatal]
  - Hepatic function abnormal [Recovering/Resolving]
  - Hyperammonaemia [Unknown]
  - Somnolence [Unknown]
  - Disseminated intravascular coagulation [Unknown]
  - Pyrexia [Unknown]
